FAERS Safety Report 8180483-4 (Version None)
Quarter: 2012Q1

REPORT INFORMATION
  Report Type: 
  Country: None (occurrence: None)
  Receive Date: 20120302
  Receipt Date: 20120222
  Transmission Date: 20120608
  Serious: Yes (Other)
  Sender: FDA-Public Use
  Company Number: US-ABBOTT-12P-163-0907532-00

PATIENT
  Sex: Male
  Weight: 113.5 kg

DRUGS (2)
  1. ANDROGEL [Suspect]
     Indication: BLOOD TESTOSTERONE DECREASED
     Dates: start: 20120101, end: 20120201
  2. ANDROGEL [Suspect]
     Indication: BLOOD TESTOSTERONE DECREASED
     Dates: start: 20100101, end: 20120101

REACTIONS (4)
  - DRY SKIN [None]
  - LOCALISED INTRAABDOMINAL FLUID COLLECTION [None]
  - PRURITUS [None]
  - HERNIA [None]
